FAERS Safety Report 10238309 (Version 1)
Quarter: 2014Q2

REPORT INFORMATION
  Report Type: Spontaneous
  Country: US (occurrence: US)
  Receive Date: 20140616
  Receipt Date: 20140616
  Transmission Date: 20141212
  Serious: No
  Sender: FDA-Public Use
  Company Number: US-PFIZER INC-2014164370

PATIENT
  Age: 61 Year
  Sex: Female
  Weight: 79.82 kg

DRUGS (3)
  1. XANAX XR [Suspect]
     Indication: PANIC ATTACK
     Dosage: 1MG IN THE MORNING AND 2MG AT NIGHT
     Route: 048
  2. XANAX XR [Suspect]
     Indication: ANXIETY
  3. LIPITOR [Concomitant]
     Indication: BLOOD CHOLESTEROL INCREASED
     Dosage: UNK

REACTIONS (2)
  - Diarrhoea [Unknown]
  - Drug ineffective [Recovering/Resolving]
